FAERS Safety Report 7815519-0 (Version None)
Quarter: 2011Q4

REPORT INFORMATION
  Report Type: 
  Country: None (occurrence: None)
  Receive Date: 20111005
  Receipt Date: 20110928
  Transmission Date: 20120403
  Serious: Yes (Other)
  Sender: FDA-Public Use
  Company Number: 2011027813

PATIENT
  Age: 63 Year
  Sex: Female
  Weight: 67.1324 kg

DRUGS (25)
  1. HIZENTRA [Suspect]
  2. KLONOPIN [Concomitant]
  3. PHENERGAN [Concomitant]
  4. FLEXERIL [Concomitant]
  5. CRESTOR [Concomitant]
  6. PREVACID [Concomitant]
  7. SYMBICORT [Concomitant]
  8. IBUPROFEN (ADVIL) [Concomitant]
  9. HIZENTRA [Suspect]
  10. LESCOL XL [Concomitant]
  11. ADDERALL (OBETROL) [Concomitant]
  12. CYMBALTA [Concomitant]
  13. ZYRTEC [Concomitant]
  14. VERAPAMIL ER (VERAPAMIL) [Concomitant]
  15. HIZENTRA [Suspect]
     Indication: IMMUNODEFICIENCY COMMON VARIABLE
     Dosage: 5 G 1X/WEEK, INFUSED 25 ML VIA MULTIPLE SITES SUBCUTANEOUS
     Route: 058
     Dates: start: 20110909, end: 20110909
  16. HIZENTRA [Suspect]
     Indication: IMMUNODEFICIENCY COMMON VARIABLE
     Dosage: 5 G 1X/WEEK, INFUSED 25 ML VIA MULTIPLE SITES SUBCUTANEOUS
     Route: 058
     Dates: start: 20110909, end: 20110909
  17. HIZENTRA [Suspect]
     Indication: IMMUNODEFICIENCY COMMON VARIABLE
     Dosage: 5 G 1X/WEEK, INFUSED 25 ML VIA MULTIPLE SITES SUBCUTANEOUS
     Route: 058
     Dates: start: 20110303
  18. HIZENTRA [Suspect]
     Indication: IMMUNODEFICIENCY COMMON VARIABLE
     Dosage: 5 G 1X/WEEK, INFUSED 25 ML VIA MULTIPLE SITES SUBCUTANEOUS
     Route: 058
     Dates: start: 20110303
  19. HIZENTRA [Suspect]
  20. IMITREX [Concomitant]
  21. PERCOCET [Concomitant]
  22. THYROID TAB [Concomitant]
  23. MUCINEX [Concomitant]
  24. FLUTICASONE PROP (FLUTICASONE) [Concomitant]
  25. XOPENEX HFA (LEVOSALBUTAMOL) [Concomitant]

REACTIONS (5)
  - NEUROPATHY PERIPHERAL [None]
  - HEADACHE [None]
  - NAUSEA [None]
  - INFUSION SITE PAIN [None]
  - HYPOTENSION [None]
